FAERS Safety Report 9951354 (Version 1)
Quarter: 2014Q1

REPORT INFORMATION
  Report Type: Spontaneous
  Country: FR (occurrence: FR)
  Receive Date: 20140304
  Receipt Date: 20140304
  Transmission Date: 20141002
  Serious: Yes (Hospitalization, Other)
  Sender: FDA-Public Use
  Company Number: FR-009507513-1402FRA012148

PATIENT
  Age: 66 Year
  Sex: Male
  Weight: 59 kg

DRUGS (11)
  1. VICTRELIS [Suspect]
     Indication: HEPATITIS C
     Dosage: 2400 MG, QD
     Route: 048
     Dates: start: 20110506, end: 20120309
  2. VIRAFERONPEG [Suspect]
     Indication: HEPATITIS C
     Dosage: 80 MICROGRAM, QW
     Route: 058
     Dates: start: 20110410, end: 20120309
  3. REBETOL [Suspect]
     Indication: HEPATITIS C
     Dosage: 1000 MG, QD
     Route: 048
     Dates: start: 20110410, end: 20120309
  4. NEORECORMON [Concomitant]
     Indication: ANAEMIA
     Dosage: UNK
     Dates: start: 20110701, end: 20120309
  5. IMOVANE [Concomitant]
     Indication: INSOMNIA
     Dosage: 7.5 MG, QD
     Dates: start: 20110729, end: 20120309
  6. INFLUENZA VIRUS VACCINE (UNSPECIFIED) [Concomitant]
     Indication: IMMUNISATION
     Dosage: 1 DF, ONCE
     Dates: start: 20110923, end: 20110923
  7. SEROPRAM [Concomitant]
     Indication: DEPRESSION
     Dosage: 20 MG, QD
     Dates: start: 20111028, end: 20111216
  8. ATARAX (ALPRAZOLAM) [Concomitant]
     Indication: ANXIETY
     Dosage: 25 MG, QD
     Dates: start: 20111216, end: 20120309
  9. KARDEGIC [Concomitant]
     Indication: HYPERTENSION
     Dosage: 160 MG, QD
     Dates: start: 20120824
  10. COVERSYL (PERINDOPRIL ARGININE) [Concomitant]
     Indication: HYPERTENSION
     Dosage: 1 DF, QD
     Dates: start: 20120824
  11. TAHOR [Concomitant]
     Indication: HYPERTENSION
     Dosage: 10 MG, UQD
     Dates: start: 20120824

REACTIONS (2)
  - Humerus fracture [Recovered/Resolved]
  - Road traffic accident [Recovered/Resolved]
